FAERS Safety Report 6090113-3 (Version None)
Quarter: 2009Q1

REPORT INFORMATION
  Report Type: 
  Country: None (occurrence: None)
  Receive Date: 20090224
  Receipt Date: 20081203
  Transmission Date: 20090719
  Serious: No
  Sender: FDA-Public Use
  Company Number: US-ABBOTT-08P-163-0491319-00

PATIENT
  Sex: Male

DRUGS (6)
  1. SIMCOR [Suspect]
     Indication: HYPERCHOLESTEROLAEMIA
     Dosage: 1 PILL 1 IN 1 D
     Route: 048
     Dates: start: 20081001, end: 20081101
  2. SIMCOR [Suspect]
     Dosage: 2 PILLS 1 IN 1 D
     Route: 048
     Dates: start: 20081101
  3. SIMCOR [Suspect]
     Dosage: 1 PILL 1 IN 1 D
     Route: 048
     Dates: end: 20081204
  4. METFORMIN [Concomitant]
     Indication: DRUG USE FOR UNKNOWN INDICATION
  5. ANTIHYPERTENSIVES [Concomitant]
     Indication: DRUG USE FOR UNKNOWN INDICATION
  6. LIPITOR [Concomitant]
     Indication: DRUG USE FOR UNKNOWN INDICATION

REACTIONS (2)
  - DIARRHOEA [None]
  - MYALGIA [None]
